FAERS Safety Report 5058168-2 (Version None)
Quarter: 2006Q3

REPORT INFORMATION
  Report Type: 
  Country: None (occurrence: None)
  Receive Date: 20060721
  Receipt Date: 20060710
  Transmission Date: 20061208
  Serious: Yes (Other)
  Sender: FDA-Public Use
  Company Number: 2006UW14212

PATIENT
  Age: 59 Year
  Sex: Female
  Weight: 86.2 kg

DRUGS (4)
  1. NEXIUM [Suspect]
     Indication: DYSPEPSIA
     Route: 048
     Dates: start: 20010101, end: 20060629
  2. ALTACE [Concomitant]
  3. AVACOR [Concomitant]
  4. ZYRTEC [Concomitant]

REACTIONS (3)
  - CARCINOID SYNDROME [None]
  - URTICARIA [None]
  - URTICARIA GENERALISED [None]
